FAERS Safety Report 6694582-7 (Version None)
Quarter: 2010Q2

REPORT INFORMATION
  Report Type: 
  Country: None (occurrence: None)
  Receive Date: 20100423
  Receipt Date: 20100419
  Transmission Date: 20101027
  Serious: Yes (Death, Hospitalization, Other)
  Sender: FDA-Public Use
  Company Number: AU-CELGENEUS-008-21880-10021349

PATIENT
  Sex: Male

DRUGS (1)
  1. REVLIMID [Suspect]
     Indication: MULTIPLE MYELOMA
     Route: 048
     Dates: start: 20100201, end: 20100301

REACTIONS (5)
  - ASTHENIA [None]
  - DEMYELINATING POLYNEUROPATHY [None]
  - MULTIPLE MYELOMA [None]
  - OEDEMA [None]
  - SEPSIS [None]
